FAERS Safety Report 9290551 (Version 3)
Quarter: 2013Q2

REPORT INFORMATION
  Report Type: Spontaneous
  Country: US (occurrence: US)
  Receive Date: 20130514
  Receipt Date: 20130606
  Transmission Date: 20140414
  Serious: Yes (Other)
  Sender: FDA-Public Use
  Company Number: US-RB-053459-13

PATIENT
  Age: 54 Year
  Sex: Female

DRUGS (13)
  1. SUBOXONE FILM [Suspect]
     Indication: DRUG DEPENDENCE
     Dosage: SUBOXONE FILM; VARIOUS TAPERED DOSES
     Route: 060
     Dates: start: 2012, end: 201304
  2. SUBOXONE FILM [Suspect]
     Dosage: SUBOXONE FILM
     Route: 060
     Dates: start: 201304
  3. SUBOXONE FILM [Suspect]
     Dosage: SUBOXONE FILM
     Route: 060
     Dates: start: 201208, end: 201302
  4. SUBOXONE FILM [Suspect]
     Dosage: SUBOXONE FILM; VARIOUS TAPERED DOSES
     Route: 060
     Dates: start: 201302, end: 20130516
  5. SUSTIVA [Concomitant]
     Indication: HIV INFECTION
     Dosage: DAILY DOSE UNKNOWN
     Route: 048
  6. EPIVIR [Concomitant]
     Indication: HIV INFECTION
     Dosage: DAILY DOSE UNKNOWN
     Route: 048
  7. ZIDOVUDINE [Concomitant]
     Indication: HIV INFECTION
     Dosage: DAILY DOSE UNKNOWN
     Route: 048
  8. ZOLPIDEM [Concomitant]
     Indication: INSOMNIA
     Dosage: AS NEEDED
     Route: 048
  9. TEMAZEPAM [Concomitant]
     Indication: INSOMNIA
     Dosage: AS NEEDED
     Route: 048
  10. ALPRAZOLAM [Concomitant]
     Indication: ANXIETY
     Dosage: AS NEEDED
     Route: 048
  11. FENOFIBRATE [Concomitant]
     Indication: HYPERLIPIDAEMIA
     Dosage: DAILY DOSE UNKNOWN
     Route: 048
  12. ROSUVASTATIN [Concomitant]
     Indication: HYPERLIPIDAEMIA
     Dosage: DAILY DOSE UNKNOWN
     Route: 048
  13. XANAX [Concomitant]
     Indication: ANXIETY
     Route: 048

REACTIONS (11)
  - Malaise [Not Recovered/Not Resolved]
  - Nausea [Not Recovered/Not Resolved]
  - Dizziness [Not Recovered/Not Resolved]
  - Feeling jittery [Not Recovered/Not Resolved]
  - Wrong technique in drug usage process [Recovered/Resolved]
  - Underdose [Recovered/Resolved]
  - Hip fracture [Not Recovered/Not Resolved]
  - Osteoporosis [Not Recovered/Not Resolved]
  - Condition aggravated [Not Recovered/Not Resolved]
  - Drug withdrawal syndrome [Not Recovered/Not Resolved]
  - Formication [Not Recovered/Not Resolved]
